FAERS Safety Report 21174514 (Version 2)
Quarter: 2022Q3

REPORT INFORMATION
  Report Type: Report from Study
  Country: US (occurrence: US)
  Receive Date: 20220805
  Receipt Date: 20220810
  Transmission Date: 20221027
  Serious: Yes (Other)
  Sender: FDA-Public Use
  Company Number: US-BRISTOL-MYERS SQUIBB COMPANY-2022-084968

PATIENT
  Age: 83 Year
  Sex: Female
  Weight: 93.44 kg

DRUGS (1)
  1. REVLIMID [Suspect]
     Active Substance: LENALIDOMIDE
     Indication: Plasma cell myeloma
     Dosage: 2.5 MG 21D AND  7D OFF
     Route: 048

REACTIONS (2)
  - Cerebrovascular accident [Unknown]
  - Neutropenia [Recovering/Resolving]
